FAERS Safety Report 13330539 (Version 9)
Quarter: 2017Q4

REPORT INFORMATION
  Report Type: Spontaneous
  Country: US (occurrence: US)
  Receive Date: 20170314
  Receipt Date: 20171201
  Transmission Date: 20180320
  Serious: No
  Sender: FDA-Public Use
  Company Number: PHEH2017US007498

PATIENT
  Sex: Female
  Weight: 86.17 kg

DRUGS (2)
  1. ZOFRAN [Suspect]
     Active Substance: ONDANSETRON HYDROCHLORIDE
     Indication: VOMITING IN PREGNANCY
     Dosage: 04 MG, UNK
     Route: 042
     Dates: start: 20140602, end: 20140602
  2. ZOFRAN ODT [Suspect]
     Active Substance: ONDANSETRON HYDROCHLORIDE
     Indication: VOMITING IN PREGNANCY
     Dosage: 04 MG, UNK
     Route: 048
     Dates: start: 20140224, end: 20140801

REACTIONS (6)
  - Emotional distress [Unknown]
  - Constipation [Unknown]
  - Vulvovaginal pain [Unknown]
  - Maternal exposure during pregnancy [Unknown]
  - Injury [Unknown]
  - Product use in unapproved indication [Unknown]
